FAERS Safety Report 21844734 (Version 1)
Quarter: 2023Q1

REPORT INFORMATION
  Report Type: Spontaneous
  Country: US (occurrence: US)
  Receive Date: 20230110
  Receipt Date: 20230110
  Transmission Date: 20230418
  Serious: Yes (Hospitalization)
  Sender: FDA-Public Use
  Company Number: US-HALEON-USCH2022053035

PATIENT
  Sex: Female
  Weight: 52.154 kg

DRUGS (1)
  1. EXCEDRIN EXTRA STRENGTH [Suspect]
     Active Substance: ACETAMINOPHEN\ASPIRIN\CAFFEINE
     Indication: Migraine
     Dosage: UNK

REACTIONS (3)
  - Overdose [Unknown]
  - Adverse drug reaction [Unknown]
  - Product use in unapproved indication [Unknown]
